FAERS Safety Report 8190930-X (Version None)
Quarter: 2012Q1

REPORT INFORMATION
  Report Type: 
  Country: None (occurrence: None)
  Receive Date: 20120307
  Receipt Date: 20120302
  Transmission Date: 20120608
  Serious: Yes (Other)
  Sender: FDA-Public Use
  Company Number: US-ABBOTT-11P-163-0886665-00

PATIENT
  Sex: Female

DRUGS (8)
  1. HUMIRA [Suspect]
     Indication: COLITIS ULCERATIVE
     Dates: start: 20091001, end: 20100101
  2. NEURONTIN [Concomitant]
     Indication: FIBROMYALGIA
     Route: 048
  3. LIALDA [Concomitant]
     Indication: COLON CANCER
     Dosage: TWICE DAILY
     Route: 048
  4. HUMIRA [Suspect]
     Indication: COLITIS ULCERATIVE
     Dates: start: 20100101
  5. LIALDA [Concomitant]
     Indication: PROPHYLAXIS
  6. OMEPRAZOLE [Concomitant]
     Indication: GASTROOESOPHAGEAL REFLUX DISEASE
     Dosage: AT BEDTIME
     Route: 048
  7. VICODIN [Concomitant]
     Indication: PAIN
     Route: 048
  8. LUNESTA [Concomitant]
     Indication: INSOMNIA
     Dosage: AT BEDTIME, AS NEEDED
     Route: 048

REACTIONS (6)
  - DEVICE MALFUNCTION [None]
  - NEEDLE ISSUE [None]
  - ENDOMETRIOSIS [None]
  - INFECTION [None]
  - INCORRECT DOSE ADMINISTERED [None]
  - INJECTION SITE PAIN [None]
